FAERS Safety Report 21967963 (Version 3)
Quarter: 2023Q4

REPORT INFORMATION
  Report Type: Report from Study
  Country: ZA (occurrence: ZA)
  Receive Date: 20230208
  Receipt Date: 20231026
  Transmission Date: 20240109
  Serious: Yes (Hospitalization)
  Sender: FDA-Public Use
  Company Number: ZA-TAKEDA-2023TUS012341

PATIENT
  Age: 52 Year
  Sex: Female

DRUGS (3)
  1. VEDOLIZUMAB [Suspect]
     Active Substance: VEDOLIZUMAB
     Indication: Colitis ulcerative
     Dosage: 300 MILLIGRAM
     Route: 042
     Dates: start: 20230120, end: 20230825
  2. ASACOL [Concomitant]
     Active Substance: MESALAMINE
     Indication: Colitis ulcerative
     Dosage: UNK
     Dates: start: 20060330
  3. ASACOL [Concomitant]
     Active Substance: MESALAMINE
     Indication: Anal abscess

REACTIONS (7)
  - Ocular hyperaemia [Recovered/Resolved]
  - Ear inflammation [Recovered/Resolved]
  - Muscle spasms [Recovered/Resolved]
  - Drug hypersensitivity [Not Recovered/Not Resolved]
  - Accidental overdose [Unknown]
  - Influenza [Not Recovered/Not Resolved]
  - Drug ineffective [Unknown]

NARRATIVE: CASE EVENT DATE: 20230120
